FAERS Safety Report 7305319-2 (Version None)
Quarter: 2011Q1

REPORT INFORMATION
  Report Type: 
  Country: None (occurrence: None)
  Receive Date: 20110222
  Receipt Date: 20110207
  Transmission Date: 20110831
  Serious: Yes (Other)
  Sender: FDA-Public Use
  Company Number: PHHY2011US00933

PATIENT
  Sex: Female

DRUGS (14)
  1. SYNTHROID [Concomitant]
  2. TOPRAL [Concomitant]
  3. CALTRATE [Concomitant]
  4. VITAMIN D [Concomitant]
  5. INSULIN [Concomitant]
  6. ZANTAC [Concomitant]
  7. BETA BLOCKING AGENTS [Concomitant]
  8. LIPITOR [Concomitant]
  9. DIGOXIN [Concomitant]
  10. PERPHENAZINE AND AMITRIPTYLINE HCL [Concomitant]
  11. LUDIOMIL [Concomitant]
  12. RECLAST [Suspect]
     Indication: OSTEOPOROSIS
     Dosage: 5 MG
     Route: 042
     Dates: start: 20101105
  13. TUMS [Concomitant]
  14. AMLODIPINE [Concomitant]

REACTIONS (8)
  - BACK PAIN [None]
  - DRUG HYPERSENSITIVITY [None]
  - PAIN IN EXTREMITY [None]
  - OEDEMA PERIPHERAL [None]
  - CORONARY ARTERY DISEASE [None]
  - ARTHRITIS [None]
  - PAIN [None]
  - ARTHRALGIA [None]
